FAERS Safety Report 7572744-4 (Version None)
Quarter: 2011Q2

REPORT INFORMATION
  Report Type: 
  Country: None (occurrence: None)
  Receive Date: 20110627
  Receipt Date: 20110615
  Transmission Date: 20111010
  Serious: Yes (Death, Hospitalization)
  Sender: FDA-Public Use
  Company Number: BE-CELGENEUS-013-50794-11043519

PATIENT
  Sex: Male

DRUGS (19)
  1. VIDAZA [Suspect]
     Route: 050
     Dates: start: 20110324, end: 20110330
  2. DIFLUCAN [Concomitant]
     Indication: INFECTION PROPHYLAXIS
     Dosage: 200 MILLIGRAM
     Route: 065
     Dates: start: 20110216
  3. PRAZEPAM [Concomitant]
     Indication: ANXIETY
     Dosage: 15 DROPS
     Route: 065
     Dates: start: 20110101
  4. ENOXAPARIN [Concomitant]
     Route: 058
     Dates: start: 20110126
  5. MOVIPREP [Concomitant]
     Route: 065
     Dates: start: 20110214
  6. RED BLOOD CELLS [Concomitant]
     Route: 065
     Dates: start: 20110407, end: 20110407
  7. ASPEGIC 325 [Concomitant]
     Dosage: 100 MILLIGRAM
     Route: 065
     Dates: start: 20080501
  8. PERINDOPRIL ERBUMINE [Concomitant]
     Dosage: 2 MILLIGRAM
     Route: 065
     Dates: start: 20080624
  9. GLICLAZIDE [Concomitant]
     Route: 065
     Dates: start: 20110216
  10. FLUCONAZOLE [Concomitant]
     Route: 065
     Dates: start: 20110216
  11. BISOPROLOL FUMARATE [Concomitant]
     Indication: PROPHYLAXIS
     Dosage: 2.5 MILLIGRAM
     Route: 065
     Dates: start: 20100623
  12. NEXIUM [Concomitant]
     Indication: DYSPHAGIA
     Dosage: 20 MILLIGRAM
     Route: 065
     Dates: start: 20110214
  13. RED BLOOD CELLS [Concomitant]
     Route: 065
     Dates: start: 20110324, end: 20110324
  14. GLUCOPHAGE [Concomitant]
     Dosage: 1500 MILLIGRAM
     Route: 065
     Dates: start: 20110215
  15. PLATELETS [Concomitant]
     Route: 065
     Dates: start: 20110407, end: 20110407
  16. NEXIUM [Concomitant]
  17. MEDROL [Concomitant]
     Dosage: 8 MILLIGRAM
     Route: 065
     Dates: start: 20110215
  18. CEFEPIME [Concomitant]
     Route: 065
     Dates: start: 20110326
  19. RED BLOOD CELLS [Concomitant]
     Route: 065
     Dates: start: 20110329, end: 20110329

REACTIONS (3)
  - BRONCHOPULMONARY ASPERGILLOSIS [None]
  - ACUTE MYELOID LEUKAEMIA [None]
  - GENERAL PHYSICAL HEALTH DETERIORATION [None]
